FAERS Safety Report 6377668-6 (Version None)
Quarter: 2009Q3

REPORT INFORMATION
  Report Type: 
  Country: None (occurrence: None)
  Receive Date: 20090925
  Receipt Date: 20090911
  Transmission Date: 20100115
  Serious: Yes (Hospitalization)
  Sender: FDA-Public Use
  Company Number: CHNY2009IT03489

PATIENT
  Sex: Female

DRUGS (1)
  1. SCOPODERM TTS (NCH) [Suspect]
     Indication: PROPHYLAXIS AGAINST MOTION SICKNESS
     Dosage: 1.5 MG, QD
     Route: 062
     Dates: start: 20090814, end: 20090817

REACTIONS (2)
  - AMAUROSIS [None]
  - MYDRIASIS [None]
